FAERS Safety Report 7978612-8 (Version None)
Quarter: 2011Q4

REPORT INFORMATION
  Report Type: 
  Country: None (occurrence: None)
  Receive Date: 20111129
  Receipt Date: 20110906
  Transmission Date: 20120403
  Serious: No
  Sender: FDA-Public Use
  Company Number: PHEH2011US03429

PATIENT
  Age: 65 Year
  Sex: Male

DRUGS (6)
  1. LIPITOR [Concomitant]
  2. ASPIRIN [Concomitant]
  3. CREON (AMYLASE, LIPASE, PANCREATIN, PROTEASE) [Concomitant]
  4. METOPROLOL TARTRATE [Concomitant]
  5. AFINITOR [Suspect]
     Dosage: 10 MG, QD, ORAL
     Route: 048
     Dates: start: 20110601
  6. SANDOSTATIN LAR [Suspect]
     Dosage: 10 MG, UNK

REACTIONS (2)
  - DIARRHOEA [None]
  - BLOOD POTASSIUM DECREASED [None]
